FAERS Safety Report 4292265-4 (Version None)
Quarter: 2004Q1

REPORT INFORMATION
  Report Type: 
  Country: None (occurrence: None)
  Receive Date: 20040211
  Receipt Date: 20040203
  Transmission Date: 20041129
  Serious: Yes (Hospitalization)
  Sender: FDA-Public Use
  Company Number: FR-GLAXOSMITHKLINE-B0322014A

PATIENT
  Age: 55 Year
  Sex: Male

DRUGS (4)
  1. CLAMOXYL [Suspect]
     Indication: ERYSIPELAS
     Dosage: 1G THREE TIMES PER DAY
     Route: 048
     Dates: start: 20030710, end: 20030715
  2. OFLOCET [Suspect]
     Indication: ERYSIPELAS
     Dosage: 1UNIT TWICE PER DAY
     Route: 048
     Dates: start: 20030704, end: 20030715
  3. FLAGYL [Suspect]
     Indication: ERYSIPELAS
     Dosage: 1UNIT THREE TIMES PER DAY
     Route: 048
     Dates: start: 20030704, end: 20030715
  4. PENICILLIN G [Concomitant]
     Indication: ERYSIPELAS
     Route: 065
     Dates: start: 20030704, end: 20030710

REACTIONS (11)
  - DEHYDRATION [None]
  - DIARRHOEA [None]
  - HYPOKALAEMIA [None]
  - INFLAMMATION [None]
  - LEUKOCYTOCLASTIC VASCULITIS [None]
  - PRURITUS [None]
  - PYREXIA [None]
  - SKIN DISORDER [None]
  - TONGUE DRY [None]
  - TOXIC SKIN ERUPTION [None]
  - URTICARIA [None]
